FAERS Safety Report 4646197-X (Version None)
Quarter: 2005Q2

REPORT INFORMATION
  Report Type: 
  Country: None (occurrence: None)
  Receive Date: 20050422
  Receipt Date: 20050411
  Transmission Date: 20051028
  Serious: Yes (Disabling)
  Sender: FDA-Public Use
  Company Number: 05P-167-0297118-00

PATIENT
  Age: 36 Year
  Sex: Female
  Weight: 110.5 kg

DRUGS (2)
  1. MERIDIA [Suspect]
     Indication: WEIGHT CONTROL
     Dosage: 10 MG, 1 IN 1 D, PER ORAL
     Route: 048
     Dates: start: 20040607, end: 20041201
  2. METFORMIN HCL [Concomitant]

REACTIONS (1)
  - DYSPHASIA [None]
